FAERS Safety Report 25479462 (Version 1)
Quarter: 2025Q2

REPORT INFORMATION
  Report Type: Spontaneous
  Country: US (occurrence: None)
  Receive Date: 20250620
  Receipt Date: 20250620
  Transmission Date: 20250717
  Serious: Yes (Other)
  Sender: FDA-CTU
  Company Number: None

PATIENT
  Age: 61 Year
  Sex: Male
  Weight: 73.94 kg

DRUGS (12)
  1. CORTICOTROPIN [Suspect]
     Active Substance: CORTICOTROPIN
     Indication: Multiple sclerosis
     Dosage: FREQUENCY : DAILY;?
     Route: 058
  2. Xanax Oral Tablet 0.25 MG [Concomitant]
  3. Flovent HFA Inhalation Aerosol 44 M [Concomitant]
  4. Aspirin Oral Tablet Delayed Release [Concomitant]
  5. Dalfampridine ER Oral Tablet Extend [Concomitant]
  6. Ocrevus Intravenous Solution 300 MG [Concomitant]
  7. metFORMIN HCl Oral Tablet 500 MG [Concomitant]
  8. Baclofen Oral Tablet 10 MG [Concomitant]
  9. Lisinopril-hydroCHLOROthiazide Oral [Concomitant]
  10. ALPRAZolam Oral Tablet 0.5 MG [Concomitant]
  11. Fluticasone Propionate Nasal Suspen [Concomitant]
  12. Flovent HFA Inhalation Aerosol 44 M [Concomitant]

REACTIONS (9)
  - Gait disturbance [None]
  - Balance disorder [None]
  - Neck pain [None]
  - Pain in extremity [None]
  - Fatigue [None]
  - Memory impairment [None]
  - Weight increased [None]
  - Dyspepsia [None]
  - Polyp [None]

NARRATIVE: CASE EVENT DATE: 20250620
